FAERS Safety Report 19865657 (Version 3)
Quarter: 2021Q4

REPORT INFORMATION
  Report Type: Report from Study
  Country: ES (occurrence: None)
  Receive Date: 20210921
  Receipt Date: 20211101
  Transmission Date: 20220303
  Serious: Yes (Other)
  Sender: FDA-Public Use
  Company Number: ES-ROCHE-2913108

PATIENT
  Age: 66 Year
  Sex: Female
  Weight: 76.1 kg

DRUGS (17)
  1. IPATASERTIB [Suspect]
     Active Substance: IPATASERTIB
     Indication: Triple negative breast cancer
     Dosage: DATE OF MOST RECENT DOSE OF STUDY DRUG PRIOR TO AE AND SAE: 11/AUG/2020
     Route: 048
     Dates: start: 20200805
  2. ATEZOLIZUMAB [Suspect]
     Active Substance: ATEZOLIZUMAB
     Indication: Triple negative breast cancer
     Dosage: ON DAYS 1 AND 15 OF EACH 28 DAY CYCLE
     Route: 042
     Dates: start: 20200805
  3. CYCLOPHOSPHAMIDE [Suspect]
     Active Substance: CYCLOPHOSPHAMIDE
     Indication: Triple negative breast cancer
     Dosage: ON DAYS 1 AND 15 OF CYCLES 1 AND 2?DOSE LAST STUDY DRUG ADMIN PRIOR SAE 600 MG/M2
     Route: 042
     Dates: start: 20200805
  4. DOXORUBICIN [Suspect]
     Active Substance: DOXORUBICIN
     Indication: Triple negative breast cancer
     Dosage: ON DAYS 1 AND 15 OF CYCLES 1 AND 2?DOSE LAST STUDY DRUG ADMIN PRIOR SAE 60 MG/M2
     Route: 042
     Dates: start: 20200805
  5. NYSTATINA [Concomitant]
     Indication: Mucosal inflammation
     Dates: start: 20200419
  6. SIMVASTATIN [Concomitant]
     Active Substance: SIMVASTATIN
     Indication: Hypercholesterolaemia
     Route: 048
  7. LORAZEPAM [Concomitant]
     Active Substance: LORAZEPAM
     Dates: start: 20200812
  8. LORMETAZEPAM [Concomitant]
     Active Substance: LORMETAZEPAM
     Route: 048
     Dates: start: 20200812
  9. SODIUM BICARBONATE [Concomitant]
     Active Substance: SODIUM BICARBONATE
     Indication: Mucosal inflammation
     Dates: start: 20200812
  10. PREDNICARBATO [Concomitant]
     Dates: start: 20200812
  11. LORATADINE [Concomitant]
     Active Substance: LORATADINE
     Indication: Mucosal inflammation
     Dates: start: 20200819
  12. LIDOCAINE [Concomitant]
     Active Substance: LIDOCAINE
     Indication: Mucosal inflammation
     Route: 055
     Dates: start: 20200819
  13. DEXAMETHASONE [Concomitant]
     Active Substance: DEXAMETHASONE
     Indication: Mucosal inflammation
     Dates: start: 20200819
  14. LOPERAMIDE [Concomitant]
     Active Substance: LOPERAMIDE
     Indication: Diarrhoea
     Route: 048
     Dates: start: 20200805, end: 20200805
  15. APREPITANT [Concomitant]
     Active Substance: APREPITANT
     Route: 048
     Dates: start: 20200805, end: 20200916
  16. METOCLOPRAMIDE [Concomitant]
     Active Substance: METOCLOPRAMIDE
     Route: 042
     Dates: start: 20200805, end: 20200916
  17. PREDNISONE [Concomitant]
     Active Substance: PREDNISONE
     Route: 048
     Dates: start: 20200805, end: 20200916

REACTIONS (1)
  - Neutropenia [Recovered/Resolved]

NARRATIVE: CASE EVENT DATE: 20200812
